FAERS Safety Report 5255161-1 (Version None)
Quarter: 2007Q1

REPORT INFORMATION
  Report Type: 
  Country: None (occurrence: None)
  Receive Date: 20070305
  Receipt Date: 20070228
  Transmission Date: 20070707
  Serious: Yes (Other)
  Sender: FDA-Public Use
  Company Number: US-AVENTIS-200711146US

PATIENT

DRUGS (3)
  1. KETEK [Suspect]
     Dosage: DOSE: UNK
     Route: 048
  2. KETEK [Suspect]
     Indication: COUGH
     Dosage: DOSE: UNK
     Route: 048
  3. KETEK [Suspect]
     Dosage: DOSE: UNK
     Route: 048

REACTIONS (2)
  - JAUNDICE [None]
  - LIVER FUNCTION TEST ABNORMAL [None]
